FAERS Safety Report 7473814-1 (Version None)
Quarter: 2011Q2

REPORT INFORMATION
  Report Type: 
  Country: None (occurrence: None)
  Receive Date: 20110511
  Receipt Date: 20110509
  Transmission Date: 20111010
  Serious: Yes (Death)
  Sender: FDA-Public Use
  Company Number: JP-PFIZER INC-2011100025

PATIENT
  Age: 86 Year
  Sex: Male

DRUGS (6)
  1. KETAS [Concomitant]
     Dosage: UNK
     Route: 065
     Dates: end: 20101112
  2. RENIVACE [Concomitant]
     Dosage: UNK
     Route: 048
     Dates: start: 20101108, end: 20101112
  3. ATORVASTATIN CALCIUM [Suspect]
     Indication: HYPERCHOLESTEROLAEMIA
     Dosage: 10 MG, 1X/DAY
     Route: 048
     Dates: start: 20101108, end: 20101112
  4. OMEPRAL [Concomitant]
     Dosage: UNK
     Route: 048
     Dates: start: 20101108, end: 20101112
  5. PLAVIX [Concomitant]
     Dosage: UNK
     Route: 048
     Dates: start: 20101108, end: 20101112
  6. ASPIRIN [Concomitant]
     Dosage: UNK
     Route: 048
     Dates: start: 20101108, end: 20101112

REACTIONS (1)
  - CARDIAC FAILURE CONGESTIVE [None]
